FAERS Safety Report 7865555-3 (Version None)
Quarter: 2011Q4

REPORT INFORMATION
  Report Type: 
  Country: None (occurrence: None)
  Receive Date: 20111028
  Receipt Date: 20110117
  Transmission Date: 20120403
  Serious: No
  Sender: FDA-Public Use
  Company Number: US-GLAXOSMITHKLINE-A0906496A

PATIENT
  Age: 55 Year
  Sex: Female

DRUGS (11)
  1. LIPITOR [Concomitant]
  2. BENEFIBER [Concomitant]
  3. VITAMIN E [Concomitant]
  4. VITAMIN D [Concomitant]
  5. VITAMIN B COMPLEX CAP [Concomitant]
  6. ADVAIR DISKUS 100/50 [Suspect]
     Indication: ASTHMA
     Dosage: 1PUFF TWICE PER DAY
     Route: 055
     Dates: start: 20021101
  7. CALCIUM CARBONATE [Concomitant]
  8. ALBUTEROL INHALER [Concomitant]
  9. ACYCLOVIR [Concomitant]
  10. CENTRUM SILVER [Concomitant]
  11. ECHINACEA [Concomitant]

REACTIONS (2)
  - COUGH [None]
  - BONE DENSITY DECREASED [None]
